FAERS Safety Report 14776538 (Version 1)
Quarter: 2018Q2

REPORT INFORMATION
  Report Type: Spontaneous
  Country: DE (occurrence: DE)
  Receive Date: 20180418
  Receipt Date: 20180418
  Transmission Date: 20180711
  Serious: Yes (Other)
  Sender: FDA-Public Use
  Company Number: PHHY2018DE066347

PATIENT
  Age: 71 Year
  Sex: Male

DRUGS (3)
  1. AMANTADINE SULFATE SANDOZ [Suspect]
     Active Substance: AMANTADINE SULFATE
     Indication: CHRONIC HEPATITIS C
     Dosage: 2 DF, QD
     Route: 048
  2. ROFERON-A [Suspect]
     Active Substance: INTERFERON ALFA-2A
     Indication: CHRONIC HEPATITIS C
     Dosage: 3 MEGAUNITS
     Route: 058
  3. ROFERON-A [Suspect]
     Active Substance: INTERFERON ALFA-2A
     Dosage: 6 MEGAUNITS
     Route: 058

REACTIONS (2)
  - Myocardial infarction [Recovered/Resolved]
  - Angina pectoris [Recovered/Resolved]
